FAERS Safety Report 10051516 (Version 1)
Quarter: 2014Q1

REPORT INFORMATION
  Report Type: Spontaneous
  Country: US (occurrence: None)
  Receive Date: 20140328
  Receipt Date: 20140328
  Transmission Date: 20141002
  Serious: Yes (Hospitalization, Other)
  Sender: FDA-Public Use
  Company Number: AUR-APL-2014-03880

PATIENT
  Age: 86 Year
  Sex: Male

DRUGS (2)
  1. CLOPIDOGREL [Suspect]
     Indication: THROMBOSIS IN DEVICE
     Dosage: 75 MG, 1 D
  2. DABIGATRAN ETEXILATE [Suspect]
     Indication: ATRIAL FIBRILLATION
     Dosage: 300 MG (150 MG, 2 IN 1 D)

REACTIONS (3)
  - Subdural haematoma [None]
  - Prothrombin time prolonged [None]
  - Activated partial thromboplastin time prolonged [None]
